FAERS Safety Report 24822552 (Version 3)
Quarter: 2025Q1

REPORT INFORMATION
  Report Type: Spontaneous
  Country: US (occurrence: US)
  Receive Date: 20250109
  Receipt Date: 20250228
  Transmission Date: 20250409
  Serious: Yes (Other)
  Sender: AUROBINDO
  Company Number: US-MLMSERVICE-20241220-PI304295-00186-1

PATIENT
  Age: 42 Year
  Sex: Female

DRUGS (2)
  1. ELIMITE [Suspect]
     Active Substance: PERMETHRIN
     Indication: Acarodermatitis
     Route: 065
  2. IVERMECTIN [Suspect]
     Active Substance: IVERMECTIN
     Indication: Acarodermatitis
     Route: 065

REACTIONS (2)
  - Delusion of parasitosis [Unknown]
  - Pruritus [Unknown]
